FAERS Safety Report 7440290-4 (Version None)
Quarter: 2011Q2

REPORT INFORMATION
  Report Type: 
  Country: None (occurrence: None)
  Receive Date: 20110427
  Receipt Date: 20110418
  Transmission Date: 20111010
  Serious: Yes (Other)
  Sender: FDA-Public Use
  Company Number: JP-ASTRAZENECA-2011SE19827

PATIENT
  Age: 20394 Day
  Sex: Female
  Weight: 72 kg

DRUGS (6)
  1. CLARITH [Concomitant]
     Indication: BRONCHITIS
     Route: 048
     Dates: start: 20110225, end: 20110228
  2. LIVALO [Concomitant]
     Indication: HYPERLIPIDAEMIA
     Route: 048
     Dates: start: 20091005
  3. AMBROXOL HYDROCHLORIDE [Concomitant]
     Indication: BRONCHITIS
     Route: 048
     Dates: start: 20110225, end: 20110228
  4. PLACODE [Concomitant]
     Indication: BRONCHITIS
     Route: 048
     Dates: start: 20110225, end: 20110331
  5. MUCODYNE [Concomitant]
     Indication: BRONCHITIS
     Route: 048
     Dates: start: 20110225, end: 20110228
  6. SYMBICORT [Suspect]
     Indication: ASTHMA
     Dosage: 4 DF TWO TIMES A DAY
     Route: 055
     Dates: start: 20110330, end: 20110331

REACTIONS (1)
  - ANAPHYLACTIC REACTION [None]
